FAERS Safety Report 7504817-6 (Version None)
Quarter: 2011Q2

REPORT INFORMATION
  Report Type: 
  Country: None (occurrence: None)
  Receive Date: 20110525
  Receipt Date: 20110329
  Transmission Date: 20111010
  Serious: Yes (Other)
  Sender: FDA-Public Use
  Company Number: US-AMGEN-USASP2011016924

PATIENT
  Age: 79 Year
  Sex: Male

DRUGS (2)
  1. EPOGEN [Suspect]
     Indication: MULTIPLE MYELOMA
  2. ARANESP [Suspect]
     Indication: MULTIPLE MYELOMA

REACTIONS (1)
  - ANAEMIA [None]
